FAERS Safety Report 9425507 (Version 1)
Quarter: 2013Q3

REPORT INFORMATION
  Report Type: Spontaneous
  Country: US (occurrence: US)
  Receive Date: 20130729
  Receipt Date: 20130729
  Transmission Date: 20140515
  Serious: No
  Sender: FDA-Public Use
  Company Number: US-MYLANLABS-2012S1014258

PATIENT
  Age: 57 Year
  Sex: Female
  Weight: 86.18 kg

DRUGS (4)
  1. LEVOTHYROXINE SODIUM TABLETS, USP [Suspect]
     Indication: HYPOTHYROIDISM
  2. LEVOTHYROXINE SODIUM TABLETS, USP [Suspect]
  3. SPIRONOLACTONE [Concomitant]
     Indication: ALOPECIA
  4. ROGAINE [Concomitant]
     Indication: ALOPECIA

REACTIONS (2)
  - Coeliac disease [Not Recovered/Not Resolved]
  - Diarrhoea [Not Recovered/Not Resolved]
